FAERS Safety Report 20785188 (Version 1)
Quarter: 2022Q2

REPORT INFORMATION
  Report Type: Spontaneous
  Country: US (occurrence: None)
  Receive Date: 20220504
  Receipt Date: 20220504
  Transmission Date: 20220721
  Serious: Yes (Other)
  Sender: FDA-Public Use
  Company Number: None

PATIENT
  Age: 74 Year
  Sex: Male
  Weight: 84.82 kg

DRUGS (19)
  1. DEVICE [Suspect]
     Active Substance: DEVICE
     Indication: Prostatomegaly
     Dosage: FREQUENCY : AT BEDTIME;?
     Route: 048
     Dates: start: 20220304, end: 20220305
  2. TAMSULOSIN [Suspect]
     Active Substance: TAMSULOSIN
  3. DICLOFENAC SODIUM [Concomitant]
     Active Substance: DICLOFENAC SODIUM
  4. HYDRALAZINE [Concomitant]
     Active Substance: HYDRALAZINE HYDROCHLORIDE
  5. LISINOPRIL [Concomitant]
     Active Substance: LISINOPRIL
  6. DEVICE [Concomitant]
     Active Substance: DEVICE
  7. AMLODIPINE BESYLATE [Concomitant]
     Active Substance: AMLODIPINE BESYLATE
  8. ESCITALOPRAM [Concomitant]
     Active Substance: ESCITALOPRAM OXALATE
  9. ROSUVASTATIN [Concomitant]
     Active Substance: ROSUVASTATIN
  10. CHLORTHALIDONE [Concomitant]
     Active Substance: CHLORTHALIDONE
  11. SPIRONOLACTONE [Concomitant]
     Active Substance: SPIRONOLACTONE
  12. LORATADINE [Concomitant]
     Active Substance: LORATADINE
  13. PANTOPRAZOLE [Concomitant]
     Active Substance: PANTOPRAZOLE
  14. ISESORBIDIDE? [Concomitant]
  15. LANTOPROST [Concomitant]
  16. ASPRIN 81MG [Concomitant]
  17. PROBIOTICS NOS [Concomitant]
     Active Substance: PROBIOTICS NOS
  18. MELATONIN [Concomitant]
     Active Substance: MELATONIN
  19. C-PAP [Concomitant]

REACTIONS (10)
  - Hypotension [None]
  - Neck pain [None]
  - Arthralgia [None]
  - Cold sweat [None]
  - Dyspnoea [None]
  - Asthenia [None]
  - Deafness [None]
  - Hearing aid user [None]
  - Device power source issue [None]
  - Device defective [None]

NARRATIVE: CASE EVENT DATE: 20220310
